FAERS Safety Report 20362123 (Version 2)
Quarter: 2022Q1

REPORT INFORMATION
  Report Type: Spontaneous
  Country: US (occurrence: US)
  Receive Date: 20220121
  Receipt Date: 20220125
  Transmission Date: 20220423
  Serious: Yes (Other)
  Sender: FDA-Public Use
  Company Number: US-JAZZ-2022-US-000302

PATIENT
  Sex: Female

DRUGS (2)
  1. ZEPZELCA [Suspect]
     Active Substance: LURBINECTEDIN
     Indication: Product used for unknown indication
     Dosage: 3.2MG/M2
     Dates: start: 20211006, end: 20211201
  2. ZEPZELCA [Suspect]
     Active Substance: LURBINECTEDIN
     Dosage: 2.6MG/M2
     Dates: start: 20211202, end: 20211222

REACTIONS (5)
  - Cytopenia [Unknown]
  - Pneumonia [Unknown]
  - Pneumonitis [Unknown]
  - Fatigue [Unknown]
  - Disease progression [Unknown]

NARRATIVE: CASE EVENT DATE: 20210101
